FAERS Safety Report 5923812-1 (Version None)
Quarter: 2008Q4

REPORT INFORMATION
  Report Type: 
  Country: None (occurrence: None)
  Receive Date: 20081020
  Receipt Date: 20081010
  Transmission Date: 20090506
  Serious: Yes (Death, Hospitalization)
  Sender: FDA-Public Use
  Company Number: US-AVENTIS-200819722GDDC

PATIENT
  Age: 60 Year
  Sex: Female
  Weight: 119 kg

DRUGS (5)
  1. TAXOTERE [Suspect]
     Route: 042
     Dates: start: 20080528
  2. TAXOTERE [Suspect]
     Route: 042
     Dates: end: 20080825
  3. LONAFARNIB [Suspect]
     Route: 048
     Dates: start: 20080623
  4. LONAFARNIB [Suspect]
     Route: 048
     Dates: end: 20080811
  5. SYNTHROID [Concomitant]
     Dates: start: 20060627

REACTIONS (5)
  - ABDOMINAL PAIN [None]
  - MULTI-ORGAN FAILURE [None]
  - OVARIAN CANCER [None]
  - RECTAL PERFORATION [None]
  - SEPSIS [None]
